FAERS Safety Report 5793522-2 (Version None)
Quarter: 2008Q2

REPORT INFORMATION
  Report Type: 
  Country: None (occurrence: None)
  Receive Date: 20080627
  Receipt Date: 20080624
  Transmission Date: 20081010
  Serious: Yes (Life-Threatening, Hospitalization, Other)
  Sender: FDA-Public Use
  Company Number: DE-JNJFOC-20080601880

PATIENT
  Sex: Female
  Weight: 75 kg

DRUGS (2)
  1. TOPAMAX MIGRANE [Suspect]
     Route: 048
  2. TOPAMAX MIGRANE [Suspect]
     Indication: DRUG USE FOR UNKNOWN INDICATION
     Route: 048

REACTIONS (12)
  - ALANINE AMINOTRANSFERASE INCREASED [None]
  - ARTHRALGIA [None]
  - ASCITES [None]
  - CARDIAC DISORDER [None]
  - CHOLELITHIASIS [None]
  - HEPATIC CONGESTION [None]
  - OEDEMA [None]
  - PLEURAL EFFUSION [None]
  - PROTEIN URINE PRESENT [None]
  - SPLENOMEGALY [None]
  - WEIGHT DECREASED [None]
  - WEIGHT INCREASED [None]
